FAERS Safety Report 5229690-0 (Version None)
Quarter: 2007Q1

REPORT INFORMATION
  Report Type: 
  Country: None (occurrence: None)
  Receive Date: 20070206
  Receipt Date: 20070124
  Transmission Date: 20070707
  Serious: Yes (Other)
  Sender: FDA-Public Use
  Company Number: PHBS2006TR18936

PATIENT
  Age: 30 Year
  Sex: Female
  Weight: 60 kg

DRUGS (3)
  1. TRILEPTAL [Suspect]
     Indication: EPILEPSY
     Dosage: 900 MG/DAY
     Route: 048
     Dates: start: 20050101
  2. TRILEPTAL [Suspect]
     Dosage: 300 MG/DAY
     Route: 048
     Dates: start: 20020101
  3. TRILEPTAL [Suspect]
     Dosage: 1200 MG/DAY
     Route: 048

REACTIONS (4)
  - ANXIETY [None]
  - CONVERSION DISORDER [None]
  - CONVULSION [None]
  - CRYING [None]
